FAERS Safety Report 7207076-7 (Version None)
Quarter: 2011Q1

REPORT INFORMATION
  Report Type: 
  Country: None (occurrence: None)
  Receive Date: 20110103
  Receipt Date: 20101230
  Transmission Date: 20110831
  Serious: Yes (Hospitalization)
  Sender: FDA-Public Use
  Company Number: B0691608A

PATIENT
  Sex: Male

DRUGS (4)
  1. URBANYL [Suspect]
     Dosage: 5MG THREE TIMES PER DAY
     Route: 048
     Dates: start: 20101021, end: 20101125
  2. KEPPRA [Suspect]
     Dosage: 250MG TWICE PER DAY
     Route: 048
     Dates: start: 20101026, end: 20101116
  3. AUGMENTIN [Suspect]
     Dosage: 1G THREE TIMES PER DAY
     Route: 048
     Dates: start: 20101104, end: 20101117
  4. CONTRAMAL [Suspect]
     Dosage: 100MG TWICE PER DAY
     Route: 048
     Dates: start: 20101024, end: 20101210

REACTIONS (4)
  - BLOOD IMMUNOGLOBULIN E INCREASED [None]
  - JAUNDICE [None]
  - EOSINOPHILIA [None]
  - HEPATITIS CHOLESTATIC [None]
